FAERS Safety Report 23205819 (Version 1)
Quarter: 2023Q4

REPORT INFORMATION
  Report Type: Spontaneous
  Country: CN (occurrence: CN)
  Receive Date: 20231120
  Receipt Date: 20231120
  Transmission Date: 20240109
  Serious: Yes (Other)
  Sender: FDA-Public Use
  Company Number: CN-PFIZER INC-PV202300185087

PATIENT
  Age: 82 Year
  Sex: Female

DRUGS (5)
  1. NIRMATRELVIR\RITONAVIR [Interacting]
     Active Substance: NIRMATRELVIR\RITONAVIR
     Dosage: 3 DF, 2X/DAY
     Dates: start: 20220515, end: 20220519
  2. ROSUVASTATIN CALCIUM [Interacting]
     Active Substance: ROSUVASTATIN CALCIUM
     Dosage: 10 MG, 1X/DAY
     Dates: start: 20220504, end: 20220517
  3. ROSUVASTATIN CALCIUM [Interacting]
     Active Substance: ROSUVASTATIN CALCIUM
     Dosage: 5 MG, 1X/DAY
     Dates: start: 20220517
  4. CEFTIZOXIME [Concomitant]
     Active Substance: CEFTIZOXIME
     Dosage: 2 G, 2X/DAY
     Route: 041
     Dates: start: 20220505, end: 20220520
  5. AMBROXOL [Concomitant]
     Active Substance: AMBROXOL
     Dosage: 30 MG, 2X/DAY
     Route: 041
     Dates: start: 20220505, end: 20220520

REACTIONS (3)
  - Drug interaction [Unknown]
  - Hepatic function abnormal [Recovering/Resolving]
  - Off label use [Unknown]

NARRATIVE: CASE EVENT DATE: 20220517
